FAERS Safety Report 5910240-8 (Version None)
Quarter: 2008Q4

REPORT INFORMATION
  Report Type: 
  Country: None (occurrence: None)
  Receive Date: 20081007
  Receipt Date: 20071026
  Transmission Date: 20090506
  Serious: Yes (Other)
  Sender: FDA-Public Use
  Company Number: US-ASTRAZENECA-2007UW25014

PATIENT
  Age: 63 Year
  Sex: Female
  Weight: 80.7 kg

DRUGS (1)
  1. ARIMIDEX [Suspect]
     Indication: BREAST CANCER
     Route: 048
     Dates: start: 20020101

REACTIONS (2)
  - DISEASE PROGRESSION [None]
  - WEIGHT DECREASED [None]
